FAERS Safety Report 12297292 (Version 3)
Quarter: 2019Q1

REPORT INFORMATION
  Report Type: Spontaneous
  Country: US (occurrence: US)
  Receive Date: 20160422
  Receipt Date: 20190329
  Transmission Date: 20190417
  Serious: Yes (Hospitalization, Other)
  Sender: FDA-Public Use
  Company Number: US-ASTRAZENECA-2016SE41644

PATIENT
  Age: 23923 Day
  Sex: Male

DRUGS (22)
  1. ONGLYZA [Suspect]
     Active Substance: SAXAGLIPTIN HYDROCHLORIDE
     Indication: TYPE 2 DIABETES MELLITUS
     Route: 048
     Dates: start: 201309, end: 201509
  2. GLIMEPIRIDE. [Concomitant]
     Active Substance: GLIMEPIRIDE
  3. LEVOTHYROXINE. [Concomitant]
     Active Substance: LEVOTHYROXINE
  4. VICTOZA [Concomitant]
     Active Substance: LIRAGLUTIDE
  5. ONGLYZA [Suspect]
     Active Substance: SAXAGLIPTIN HYDROCHLORIDE
     Indication: TYPE 2 DIABETES MELLITUS
     Route: 048
     Dates: start: 20130917
  6. PANTOPRAZOLE [Concomitant]
     Active Substance: PANTOPRAZOLE
  7. DILTIAZEM. [Concomitant]
     Active Substance: DILTIAZEM
  8. AMLODIPINE BESYLATE. [Concomitant]
     Active Substance: AMLODIPINE BESYLATE
  9. KOMBIGLYZE XR [Suspect]
     Active Substance: METFORMIN HYDROCHLORIDE\SAXAGLIPTIN HYDROCHLORIDE
     Indication: TYPE 2 DIABETES MELLITUS
     Route: 048
     Dates: start: 201309, end: 201509
  10. FEXOFENADINE [Concomitant]
     Active Substance: FEXOFENADINE\FEXOFENADINE HYDROCHLORIDE
  11. ZOLPIDEM [Concomitant]
     Active Substance: ZOLPIDEM\ZOLPIDEM TARTRATE
  12. INDOMETHACIN. [Concomitant]
     Active Substance: INDOMETHACIN
  13. GABAPENTIN. [Concomitant]
     Active Substance: GABAPENTIN
  14. AMOXICILLIN. [Concomitant]
     Active Substance: AMOXICILLIN
  15. GLYBURIDE. [Concomitant]
     Active Substance: GLYBURIDE
  16. AMIODARONE [Concomitant]
     Active Substance: AMIODARONE
  17. VASCEPA [Concomitant]
     Active Substance: ICOSAPENT ETHYL
  18. FUROSEMIDE. [Concomitant]
     Active Substance: FUROSEMIDE
  19. ATORVASTATIN [Concomitant]
     Active Substance: ATORVASTATIN
  20. COUMADIN [Concomitant]
     Active Substance: WARFARIN SODIUM
  21. DEXILANT [Concomitant]
     Active Substance: DEXLANSOPRAZOLE
  22. METFORMIN [Concomitant]
     Active Substance: METFORMIN HYDROCHLORIDE

REACTIONS (3)
  - Cardiac failure [Unknown]
  - Cardiac failure congestive [Unknown]
  - Cardiomyopathy [Unknown]

NARRATIVE: CASE EVENT DATE: 20150430
